FAERS Safety Report 7013587-X (Version None)
Quarter: 2010Q3

REPORT INFORMATION
  Report Type: 
  Country: None (occurrence: None)
  Receive Date: 20100924
  Receipt Date: 20100915
  Transmission Date: 20110219
  Serious: Yes (Death)
  Sender: FDA-Public Use
  Company Number: GXKR2010HR10511

PATIENT
  Age: 70 Year
  Sex: Female

DRUGS (3)
  1. CARVEDILOL (NGX) [Suspect]
     Indication: HYPERTENSION
     Dosage: 12.5 MG, BID
     Route: 065
  2. SIMVASTATIN [Concomitant]
     Indication: HYPERLIPIDAEMIA
     Dosage: 20 MG, QD
     Route: 065
  3. LEVOTHYROXINE SODIUM [Concomitant]
     Indication: HYPOTHYROIDISM
     Dosage: 100 UG, QD
     Route: 065

REACTIONS (15)
  - BLISTER [None]
  - CHILLS [None]
  - CONFUSIONAL STATE [None]
  - DIALYSIS [None]
  - EPIDERMOLYSIS [None]
  - MUCOSAL EROSION [None]
  - MULTI-ORGAN FAILURE [None]
  - PRURITUS [None]
  - PYREXIA [None]
  - RASH MACULAR [None]
  - RENAL FAILURE [None]
  - SEPTIC SHOCK [None]
  - SKIN EROSION [None]
  - STAPHYLOCOCCUS TEST POSITIVE [None]
  - TOXIC EPIDERMAL NECROLYSIS [None]
